FAERS Safety Report 8978066 (Version 2)
Quarter: 2013Q1

REPORT INFORMATION
  Report Type: Spontaneous
  Country: FR (occurrence: None)
  Receive Date: 20120822
  Receipt Date: 20121203
  Transmission Date: 20140127
  Serious: Yes (Hospitalization)
  Sender: FDA-Public Use
  Company Number: 218562

PATIENT
  Age: 83 Year
  Sex: Male

DRUGS (9)
  1. INNOHEP (TINZAPARIN SODIUM) [Suspect]
     Indication: SURGERY
     Route: 058
     Dates: start: 20120509, end: 20120521
  2. INNOHEP (TINZAPARIN SODIUM) [Suspect]
     Indication: PROPHYLAXIS
     Route: 058
     Dates: start: 20120509, end: 20120521
  3. KARDEGIC [Suspect]
     Indication: PRODUCT USED FOR UNKNOWN INDICATION
     Route: 048
     Dates: start: 2005, end: 20120521
  4. PREVISCAN [Suspect]
     Indication: PRODUCT USED FOR UNKNOWN INDICATION
     Route: 048
     Dates: start: 20120518, end: 20120524
  5. CORDARONE (AMIODARONE HYDROCHLORIDE) [Concomitant]
  6. LASILIX FAIBLE (FUROSEMIDE) [Concomitant]
  7. TAHOR (ATORVASTATIN CALCIUM) [Concomitant]
  8. MYDRIATICUM (TROPICAMIDE) [Concomitant]
  9. KAYEXALATE (SODIUM POLYSTYRENE SULFONATE) [Concomitant]

REACTIONS (3)
  - Subretinal haematoma [None]
  - Retinal detachment [None]
  - Visual acuity reduced [None]
